FAERS Safety Report 26068974 (Version 3)
Quarter: 2025Q4

REPORT INFORMATION
  Report Type: Spontaneous
  Country: US (occurrence: US)
  Receive Date: 20251120
  Receipt Date: 20251226
  Transmission Date: 20260118
  Serious: No
  Sender: BAUSCH AND LOMB
  Company Number: US-BAUSCHBL-2025BNL031919

PATIENT
  Age: 64 Year
  Sex: Female

DRUGS (1)
  1. TOBRAMYCIN AND DEXAMETHASONE [Suspect]
     Active Substance: DEXAMETHASONE\TOBRAMYCIN
     Indication: Eye irritation
     Route: 047

REACTIONS (9)
  - Fatigue [Unknown]
  - Somnolence [Unknown]
  - Product use complaint [Unknown]
  - Wrong dose [Unknown]
  - Product container issue [Unknown]
  - Exposure via skin contact [Unknown]
  - Accidental exposure to product [Unknown]
  - Product delivery mechanism issue [Unknown]
  - Patient dissatisfaction with treatment [Unknown]
